FAERS Safety Report 25079970 (Version 1)
Quarter: 2025Q1

REPORT INFORMATION
  Report Type: Report from Study
  Country: JP (occurrence: JP)
  Receive Date: 20250314
  Receipt Date: 20250314
  Transmission Date: 20250409
  Serious: Yes (Other)
  Sender: INSUD PHARMA
  Company Number: JP-INSUD PHARMA-2503JP01906

PATIENT

DRUGS (1)
  1. TESTOSTERONE [Suspect]
     Active Substance: TESTOSTERONE
     Indication: Transgender hormonal therapy
     Route: 065

REACTIONS (4)
  - Endometrial cancer stage II [Recovered/Resolved]
  - Vaginal haemorrhage [Recovered/Resolved]
  - Anaemia [Recovered/Resolved]
  - Polycystic ovaries [Unknown]
